FAERS Safety Report 12139072 (Version 3)
Quarter: 2016Q2

REPORT INFORMATION
  Report Type: Spontaneous
  Country: US (occurrence: US)
  Receive Date: 20160302
  Receipt Date: 20160411
  Transmission Date: 20160815
  Serious: Yes (Hospitalization, Other)
  Sender: FDA-Public Use
  Company Number: US-009507513-1602USA012515

PATIENT
  Sex: Male

DRUGS (2)
  1. AMLODIPINE BESYLATE. [Concomitant]
     Active Substance: AMLODIPINE BESYLATE
  2. PRINIVIL [Suspect]
     Active Substance: LISINOPRIL
     Indication: BLOOD PRESSURE ABNORMAL
     Dosage: 40 MG, TWICE PER DAY
     Route: 048
     Dates: start: 2004, end: 20150201

REACTIONS (3)
  - Cerebrovascular accident [Unknown]
  - Renal failure [Unknown]
  - Neoplasm [Unknown]

NARRATIVE: CASE EVENT DATE: 20150201
